FAERS Safety Report 10929956 (Version 1)
Quarter: 2015Q1

REPORT INFORMATION
  Report Type: Spontaneous
  Country: US (occurrence: US)
  Receive Date: 20150319
  Receipt Date: 20150319
  Transmission Date: 20150721
  Serious: No
  Sender: FDA-Public Use
  Company Number: US-ASTRAZENECA-2015SE24265

PATIENT
  Age: 52 Year
  Sex: Female

DRUGS (2)
  1. METOPROLOL-UNSPECIFIED [Suspect]
     Active Substance: METOPROLOL
     Indication: TACHYCARDIA
     Route: 065
  2. CRESTOR [Suspect]
     Active Substance: ROSUVASTATIN CALCIUM
     Indication: BLOOD CHOLESTEROL
     Route: 048

REACTIONS (3)
  - Off label use [Unknown]
  - Tachycardia [Unknown]
  - Myalgia [Unknown]
